FAERS Safety Report 21415401 (Version 1)
Quarter: 2022Q4

REPORT INFORMATION
  Report Type: Spontaneous
  Country: US (occurrence: US)
  Receive Date: 20221006
  Receipt Date: 20221006
  Transmission Date: 20230113
  Serious: Yes (Other)
  Sender: FDA-Public Use
  Company Number: US-SA-SAC20220930000330

PATIENT
  Sex: Female
  Weight: 66 kg

DRUGS (7)
  1. AUBAGIO [Suspect]
     Active Substance: TERIFLUNOMIDE
     Indication: Multiple sclerosis
     Dosage: 14 MG QD
     Route: 048
  2. PFIZER-BIONTECH COVID-19 VACCINE [Concomitant]
     Active Substance: TOZINAMERAN
  3. IBUPROFEN [Concomitant]
     Active Substance: IBUPROFEN
  4. ESTRADIOL [Concomitant]
     Active Substance: ESTRADIOL
  5. HYDROCHLOROTHIAZIDE [Concomitant]
     Active Substance: HYDROCHLOROTHIAZIDE
     Dosage: 40MG
  6. LISINOPRIL [Concomitant]
     Active Substance: LISINOPRIL
     Dosage: 25MG
  7. VITAMIN D3 [Concomitant]
     Active Substance: CHOLECALCIFEROL

REACTIONS (1)
  - Generalised tonic-clonic seizure [Unknown]

NARRATIVE: CASE EVENT DATE: 20220801
